FAERS Safety Report 24358280 (Version 1)
Quarter: 2024Q3

REPORT INFORMATION
  Report Type: Spontaneous
  Country: US (occurrence: None)
  Receive Date: 20240924
  Receipt Date: 20240924
  Transmission Date: 20241017
  Serious: Yes (Hospitalization)
  Sender: Public
  Company Number: None

PATIENT
  Sex: Male

DRUGS (10)
  1. PULMOZYME [Suspect]
     Active Substance: DORNASE ALFA
     Indication: Cystic fibrosis
     Route: 055
     Dates: start: 20240924
  2. AZITHROMYCIN [Concomitant]
     Active Substance: AZITHROMYCIN
  3. BUDESONIDE [Concomitant]
     Active Substance: BUDESONIDE
  4. DOXYCYCL HYC TAB [Concomitant]
  5. DOXYCYCLINE HYCLATE [Concomitant]
     Active Substance: DOXYCYCLINE HYCLATE
  6. LANSOPRAZOLE TAB [Concomitant]
  7. PULMOZYME SOL [Concomitant]
  8. SODIUM CHLOR NEB [Concomitant]
  9. SODIUM CHLOR SOL [Concomitant]
  10. XOPENEX HFA AER [Concomitant]

REACTIONS (1)
  - Infection [None]
